FAERS Safety Report 8795769 (Version 4)
Quarter: 2018Q4

REPORT INFORMATION
  Report Type: Spontaneous
  Country: US (occurrence: US)
  Receive Date: 20120919
  Receipt Date: 20181105
  Transmission Date: 20190205
  Serious: No
  Sender: FDA-Public Use
  Company Number: US-ASTRAZENECA-2012SE51958

PATIENT
  Age: 676 Month
  Sex: Female
  Weight: 105.2 kg

DRUGS (7)
  1. NEXIUM [Suspect]
     Active Substance: ESOMEPRAZOLE MAGNESIUM
     Indication: GASTROOESOPHAGEAL REFLUX DISEASE
     Route: 048
     Dates: start: 20070122
  2. CALCIUM [Concomitant]
     Active Substance: CALCIUM
  3. SYNTHROID [Concomitant]
     Active Substance: LEVOTHYROXINE SODIUM
  4. ACIPHEX [Concomitant]
     Active Substance: RABEPRAZOLE SODIUM
     Indication: GASTROOESOPHAGEAL REFLUX DISEASE
     Dates: start: 201601
  5. PULMICORT FLEXHALER [Suspect]
     Active Substance: BUDESONIDE
     Indication: ASTHMA
     Dosage: 180MCG 2 PUFFS TWICE DAILY
     Route: 055
     Dates: start: 1999
  6. MULTIVITAMIN [Concomitant]
     Active Substance: VITAMINS
  7. NEXIUM [Suspect]
     Active Substance: ESOMEPRAZOLE MAGNESIUM
     Indication: GASTROOESOPHAGEAL REFLUX DISEASE
     Route: 048
     Dates: end: 2015

REACTIONS (14)
  - Intentional product misuse [Unknown]
  - Gastritis erosive [Unknown]
  - Pain [Unknown]
  - Nausea [Unknown]
  - Device malfunction [Unknown]
  - Erosive oesophagitis [Unknown]
  - Gastrooesophageal reflux disease [Unknown]
  - Salivary hypersecretion [Unknown]
  - Knuckle pads [Unknown]
  - Condition aggravated [Unknown]
  - Gastritis [Unknown]
  - Arthritis [Unknown]
  - Product dose omission [Unknown]
  - Dyspepsia [Unknown]

NARRATIVE: CASE EVENT DATE: 201602
